FAERS Safety Report 9525055 (Version 1)
Quarter: 2013Q1

REPORT INFORMATION
  Report Type: Spontaneous
  Country: US (occurrence: None)
  Receive Date: 20130313
  Receipt Date: 20130313
  Transmission Date: 20140127
  Serious: Yes (Other)
  Sender: FDA-Public Use
  Company Number: 1000030067

PATIENT
  Age: 56 Year
  Sex: Female

DRUGS (5)
  1. SAVELLA (MILNACIPRAN HYDROCHLORIDE (12.5 MILLIGRAM, TABLETS) [Suspect]
     Indication: FIBROMYALGIA
     Route: 048
     Dates: start: 20120418, end: 20120418
  2. ZOLOFT (SERTRALINE HYDROCHLORIDE) (SERTRALINE HYDROCHLORIDE) [Concomitant]
  3. METOPROLOL (METOPROLOL) (METOPROLOL) [Concomitant]
  4. NEXIUM (ESOMEPRAZOLE) (ESOMEPRAZOLE) [Concomitant]
  5. ASPIRIN (ACETYLSALICYLIC ACID) (ACETYLSALICYLIC ACID) [Concomitant]

REACTIONS (4)
  - Hyperhidrosis [None]
  - Asthenia [None]
  - Hot flush [None]
  - Feeling cold [None]
